FAERS Safety Report 11983592 (Version 1)
Quarter: 2016Q1

REPORT INFORMATION
  Report Type: Spontaneous
  Country: FR (occurrence: FR)
  Receive Date: 20160201
  Receipt Date: 20160201
  Transmission Date: 20160526
  Serious: Yes (Other)
  Sender: FDA-Public Use
  Company Number: FR-PFIZER INC-2016047507

PATIENT
  Age: 85 Year
  Sex: Female

DRUGS (2)
  1. TOPALGIC LP [Suspect]
     Active Substance: TRAMADOL
     Dosage: 200 MG, 2X/DAY
     Route: 048
     Dates: start: 20150119, end: 20150122
  2. LYRICA [Suspect]
     Active Substance: PREGABALIN
     Dosage: 25 MG, 2X/DAY
     Route: 048
     Dates: start: 20150119, end: 20150122

REACTIONS (3)
  - Vertigo [Recovered/Resolved]
  - Confusional state [Recovered/Resolved]
  - Asterixis [Recovered/Resolved]

NARRATIVE: CASE EVENT DATE: 20150122
